FAERS Safety Report 7331238-1 (Version None)
Quarter: 2011Q1

REPORT INFORMATION
  Report Type: 
  Country: None (occurrence: None)
  Receive Date: 20110304
  Receipt Date: 20110302
  Transmission Date: 20110831
  Serious: Yes (Hospitalization)
  Sender: FDA-Public Use
  Company Number: AU-PFIZER INC-2011045071

PATIENT
  Sex: Male

DRUGS (2)
  1. XANAX [Suspect]
     Indication: PANIC ATTACK
     Dosage: 500 UG, AS NEEDED
  2. ZYPREXA [Concomitant]
     Dosage: UNK

REACTIONS (3)
  - CONFUSIONAL STATE [None]
  - DELUSIONAL DISORDER, UNSPECIFIED TYPE [None]
  - DELIRIUM [None]
